FAERS Safety Report 10037504 (Version 1)
Quarter: 2014Q1

REPORT INFORMATION
  Report Type: Spontaneous
  Country: US (occurrence: None)
  Receive Date: 20140325
  Receipt Date: 20140325
  Transmission Date: 20141002
  Serious: Yes (Life-Threatening, Disabling)
  Sender: FDA-Public Use
  Company Number: None

PATIENT
  Age: 72 Year
  Sex: Female
  Weight: 76.2 kg

DRUGS (7)
  1. PROLIA [Suspect]
     Indication: OSTEOPOROSIS
     Dosage: 60 MG ?1 INJECTION VIAL?EVERY 6 MONTHS?INJECTION
     Route: 042
     Dates: start: 20140925
  2. PROLIA [Suspect]
     Indication: SPINAL COLUMN STENOSIS
     Dosage: 60 MG ?1 INJECTION VIAL?EVERY 6 MONTHS?INJECTION
     Route: 042
     Dates: start: 20140925
  3. AMLODIPINE BESYLATE [Concomitant]
  4. METOPROLOL ER [Concomitant]
  5. COLESTIPOL [Concomitant]
  6. OMEPRAZOLE DR [Concomitant]
  7. CENTRUM SENIOR VITS [Concomitant]

REACTIONS (8)
  - Blister [None]
  - Haemorrhage subcutaneous [None]
  - Rash pruritic [None]
  - Fear [None]
  - Dehydration [None]
  - Rash macular [None]
  - Scar [None]
  - Skin haemorrhage [None]
